FAERS Safety Report 13406453 (Version 1)
Quarter: 2017Q2

REPORT INFORMATION
  Report Type: Spontaneous
  Country: US (occurrence: US)
  Receive Date: 20170405
  Receipt Date: 20170405
  Transmission Date: 20170830
  Serious: Yes (Hospitalization)
  Sender: FDA-Public Use
  Company Number: US-SA-2017SA037190

PATIENT
  Sex: Male

DRUGS (6)
  1. PRALUENT [Suspect]
     Active Substance: ALIROCUMAB
     Route: 058
     Dates: start: 20160625
  2. ALIROCUMAB PREFILLED PEN [Concomitant]
     Active Substance: ALIROCUMAB
     Route: 058
     Dates: start: 20160625
  3. PRALUENT [Suspect]
     Active Substance: ALIROCUMAB
     Route: 058
  4. AMIODARONE [Concomitant]
     Active Substance: AMIODARONE
  5. ZETIA [Concomitant]
     Active Substance: EZETIMIBE
  6. PLAVIX [Suspect]
     Active Substance: CLOPIDOGREL BISULFATE
     Route: 065

REACTIONS (2)
  - Cardiac valve disease [Unknown]
  - Pruritus [Unknown]
